FAERS Safety Report 7581328-3 (Version None)
Quarter: 2011Q2

REPORT INFORMATION
  Report Type: 
  Country: None (occurrence: None)
  Receive Date: 20110629
  Receipt Date: 20110627
  Transmission Date: 20111010
  Serious: Yes (Other)
  Sender: FDA-Public Use
  Company Number: US-PFIZER INC-2011142474

PATIENT
  Age: 11 Year
  Sex: Male
  Weight: 34.921 kg

DRUGS (14)
  1. VALPROIC ACID [Concomitant]
     Dosage: 250 MG, 3X/DAY
     Route: 048
  2. BUDESONIDE [Concomitant]
  3. HYDROCORTISONE [Concomitant]
     Indication: ADRENAL INSUFFICIENCY
     Dosage: 7.5 MG, 2X/DAY
     Route: 048
  4. ONDANSETRON [Concomitant]
     Dosage: UNK, AS NEEDED
     Route: 048
  5. CELECOXIB [Concomitant]
     Dosage: 100 MG, DAILY
     Route: 048
  6. AZITHROMYCIN [Suspect]
     Indication: ANTIINFLAMMATORY THERAPY
     Dosage: 200 MG, EVERY OTHER DAY
     Route: 048
  7. LEVOSALBUTAMOL [Concomitant]
     Dosage: EVERY SIX HOURS
  8. LANSOPRAZOLE [Concomitant]
     Dosage: 30 MG, DAILY
     Route: 048
  9. MONTELUKAST [Concomitant]
     Indication: BRONCHIAL HYPERREACTIVITY
     Dosage: 5 MG, DAILY
     Route: 048
  10. CARNITINE [Concomitant]
     Dosage: 650 MG, 2X/DAY
     Route: 048
  11. FOLIC ACID [Concomitant]
     Dosage: 250 UG, 3X/DAY
     Route: 048
  12. CLONAZEPAM [Concomitant]
     Dosage: 1 MG, 3X/DAY
     Route: 048
  13. TIZANIDINE [Concomitant]
     Indication: MUSCLE SPASTICITY
     Dosage: 2 MG, DAILY
     Route: 048
  14. SENNA SYRUP [Concomitant]
     Route: 048

REACTIONS (7)
  - CHOLELITHIASIS [None]
  - OXYGEN SATURATION DECREASED [None]
  - ACTIVATED PARTIAL THROMBOPLASTIN TIME PROLONGED [None]
  - PANCREATITIS [None]
  - INTERNATIONAL NORMALISED RATIO INCREASED [None]
  - RESTLESSNESS [None]
  - COAGULOPATHY [None]
